FAERS Safety Report 9786927 (Version 1)
Quarter: 2013Q4

REPORT INFORMATION
  Report Type: Spontaneous
  Country: US (occurrence: US)
  Receive Date: 20131227
  Receipt Date: 20131227
  Transmission Date: 20140711
  Serious: Yes (Other)
  Sender: FDA-Public Use
  Company Number: US-RB-061822-13

PATIENT
  Age: 29 Year
  Sex: Female

DRUGS (5)
  1. SUBOXONE FILM [Suspect]
     Indication: DRUG DEPENDENCE
     Dosage: SUBOXONE FILM
     Route: 060
     Dates: start: 2011, end: 2011
  2. SUBOXONE TABLET [Suspect]
     Indication: DRUG DEPENDENCE
     Route: 060
  3. BUPRENORPHINE/NALOXONE GENERIC [Suspect]
     Indication: DRUG DEPENDENCE
     Route: 060
  4. BUPRENORPHINE GENERIC [Suspect]
     Indication: DRUG DEPENDENCE
     Dosage: DOSING DETAILS UNKNOWN; THE PATIENT WAS TAKING VARIOUS DOSES BY CUTTING
     Route: 060
     Dates: end: 2012
  5. BUPRENORPHINE GENERIC [Suspect]
     Dosage: CUTTING THE DOSE
     Route: 060
     Dates: start: 2012, end: 20131215

REACTIONS (4)
  - Substance abuse [Recovered/Resolved]
  - Convulsion [Recovered/Resolved]
  - Disorientation [Recovered/Resolved]
  - Wrong technique in drug usage process [Recovered/Resolved]
